FAERS Safety Report 20402912 (Version 1)
Quarter: 2022Q1

REPORT INFORMATION
  Report Type: Spontaneous
  Country: AR (occurrence: AR)
  Receive Date: 20220131
  Receipt Date: 20220131
  Transmission Date: 20220423
  Serious: Yes (Other)
  Sender: FDA-Public Use
  Company Number: AR-PFIZER INC-2020298005

PATIENT
  Age: 58 Year
  Sex: Male

DRUGS (2)
  1. ENBREL [Suspect]
     Active Substance: ETANERCEPT
     Indication: Rheumatoid arthritis
     Dosage: 50 MG, (1 APPLICATION EVERY 15 DAYS)
     Route: 065
     Dates: start: 20070301
  2. ENBREL [Suspect]
     Active Substance: ETANERCEPT
     Dosage: 50 MG, EVERY 15 DAYS
     Route: 065

REACTIONS (5)
  - Off label use [Unknown]
  - Pain [Not Recovered/Not Resolved]
  - Intentional product misuse [Unknown]
  - Prostatic disorder [Recovered/Resolved]
  - Urinary tract disorder [Recovered/Resolved]

NARRATIVE: CASE EVENT DATE: 20070301
